FAERS Safety Report 9489405 (Version 2)
Quarter: 2014Q2

REPORT INFORMATION
  Report Type: Spontaneous
  Country: IT (occurrence: IT)
  Receive Date: 20130829
  Receipt Date: 20140417
  Transmission Date: 20141212
  Serious: Yes (Life-Threatening)
  Sender: FDA-Public Use
  Company Number: PHHY2013IT093126

PATIENT
  Age: 63 Year
  Sex: Male

DRUGS (5)
  1. METFORMIN [Suspect]
     Dosage: 1500 MG, QD
     Route: 048
     Dates: start: 20120101, end: 20121218
  2. GLIBENCLAMIDE, METFORMIN [Suspect]
     Dosage: 1500 MG, QD
     Dates: start: 20120101, end: 20121218
  3. MICARDIS [Concomitant]
     Dosage: UNK
  4. CLEXANE [Concomitant]
     Dosage: UNK
  5. ATORVASTATIN [Concomitant]

REACTIONS (2)
  - Multi-organ failure [Recovered/Resolved]
  - Toxicity to various agents [Recovered/Resolved]
